FAERS Safety Report 4745024-X (Version None)
Quarter: 2005Q3

REPORT INFORMATION
  Report Type: 
  Country: None (occurrence: None)
  Receive Date: 20050811
  Receipt Date: 20050801
  Transmission Date: 20060218
  Serious: Yes (Hospitalization)
  Sender: FDA-Public Use
  Company Number: 2005-131153-NL

PATIENT
  Age: 16 Month
  Sex: Male

DRUGS (7)
  1. VECURONIUM BROMIDE [Suspect]
     Indication: HYPOTONIA
     Dosage: INTRAMUSCULAR
     Route: 030
  2. MIDAZOLAM HCL [Concomitant]
  3. REMIFENTANIL [Concomitant]
  4. HYDROCORTISONE [Concomitant]
  5. AMINOPHYLLINE [Concomitant]
  6. CEFTAZIDIME [Concomitant]
  7. TOBRAMYCIN [Concomitant]

REACTIONS (1)
  - MYOPATHY STEROID [None]
